FAERS Safety Report 7091226-X (Version None)
Quarter: 2010Q4

REPORT INFORMATION
  Report Type: 
  Country: None (occurrence: None)
  Receive Date: 20101109
  Receipt Date: 20101102
  Transmission Date: 20110411
  Serious: Yes (Life-Threatening, Hospitalization, Other)
  Sender: FDA-Public Use
  Company Number: DE-ROCHE-739229

PATIENT
  Sex: Female
  Weight: 46 kg

DRUGS (8)
  1. CAPECITABINE [Suspect]
     Route: 048
     Dates: start: 20100804, end: 20100817
  2. RESTEX [Concomitant]
     Route: 048
  3. OMEPRAZOLE [Concomitant]
     Indication: GASTRITIS
     Route: 048
  4. METOPROLOL [Concomitant]
     Indication: HYPERTENSION
     Route: 048
  5. DOXEPIN HCL [Concomitant]
     Indication: PAIN
     Route: 048
  6. FENTANYL [Concomitant]
     Indication: PAIN
     Route: 003
  7. ASPIRIN [Concomitant]
     Indication: PERIPHERAL ARTERIAL OCCLUSIVE DISEASE
     Route: 048
  8. RAMIPLUS [Concomitant]
     Indication: HYPERTENSION
     Route: 048

REACTIONS (4)
  - COLITIS [None]
  - HYPOCOAGULABLE STATE [None]
  - MUCOSAL INFLAMMATION [None]
  - VENTRICULAR FIBRILLATION [None]
